FAERS Safety Report 23408298 (Version 2)
Quarter: 2024Q1

REPORT INFORMATION
  Report Type: Spontaneous
  Country: FR (occurrence: FR)
  Receive Date: 20240117
  Receipt Date: 20240220
  Transmission Date: 20240410
  Serious: Yes (Other)
  Sender: FDA-Public Use
  Company Number: FR-002147023-NVSC2024FR009499

PATIENT
  Age: 40 Year
  Sex: Female

DRUGS (4)
  1. KESIMPTA [Suspect]
     Active Substance: OFATUMUMAB
     Indication: Multiple sclerosis
     Dosage: 20 MG 0,4ML
     Route: 058
     Dates: start: 20231220
  2. KESIMPTA [Suspect]
     Active Substance: OFATUMUMAB
     Dosage: 20 MG 0,4ML
     Route: 058
     Dates: start: 20231227
  3. KESIMPTA [Suspect]
     Active Substance: OFATUMUMAB
     Dosage: 20 MG 0,4ML
     Route: 058
     Dates: start: 20240103
  4. MEDROL [Concomitant]
     Active Substance: METHYLPREDNISOLONE
     Indication: Respiratory tract infection
     Dosage: UNK (START DATE: EARLY-DEC-2023)
     Route: 065

REACTIONS (1)
  - Lymphocyte count decreased [Unknown]
